FAERS Safety Report 8824331 (Version 1)
Quarter: 2012Q4

REPORT INFORMATION
  Report Type: 
  Country: US (occurrence: US)
  Receive Date: 20121004
  Receipt Date: 20121004
  Transmission Date: 20130627
  Serious: Yes (Hospitalization)
  Sender: FDA-Public Use
  Company Number: US-SANOFI-AVENTIS-2012SA071702

PATIENT
  Age: 74 Year
  Sex: Female

DRUGS (2)
  1. LANTUS SOLOSTAR [Suspect]
     Indication: DIABETES MELLITUS
     Dosage: Dose:8 unit(s)
     Route: 058
     Dates: start: 201207
  2. SOLOSTAR [Suspect]
     Indication: DIABETES MELLITUS
     Dates: start: 201207

REACTIONS (1)
  - Atrial fibrillation [Recovered/Resolved]
